FAERS Safety Report 4856111-X (Version None)
Quarter: 2005Q4

REPORT INFORMATION
  Report Type: 
  Country: None (occurrence: None)
  Receive Date: 20051216
  Receipt Date: 20050930
  Transmission Date: 20060501
  Serious: Yes (Hospitalization, Other)
  Sender: FDA-Public Use
  Company Number: US-MERCK-0510USA00679

PATIENT
  Age: 61 Year
  Sex: Female
  Weight: 132 kg

DRUGS (11)
  1. VIOXX [Suspect]
     Indication: ARTHRITIS
     Route: 048
     Dates: start: 19991101, end: 20040701
  2. ALPRAZOLAM [Concomitant]
     Route: 065
  3. NEOMYCIN [Concomitant]
     Route: 065
  4. CEPHALEXIN [Concomitant]
     Route: 065
  5. DOXYCYCLINE [Concomitant]
     Route: 065
  6. METOPROLOL [Concomitant]
     Route: 065
  7. HYDROCODONE BITARTRATE [Concomitant]
     Route: 065
  8. PERCOCET [Concomitant]
     Route: 065
  9. PROMETHAZINE [Concomitant]
     Route: 065
  10. AVINZA [Concomitant]
     Route: 065
  11. ROXICET [Concomitant]
     Route: 065

REACTIONS (1)
  - MYOCARDIAL INFARCTION [None]
